FAERS Safety Report 8543742 (Version 4)
Quarter: 2013Q4

REPORT INFORMATION
  Report Type: Spontaneous
  Country: US (occurrence: US)
  Receive Date: 20120503
  Receipt Date: 20131212
  Transmission Date: 20140711
  Serious: Yes (Hospitalization, Other)
  Sender: FDA-Public Use
  Company Number: US-BAYER-2012-041996

PATIENT
  Age: 18 Year
  Sex: Female
  Weight: 52.15 kg

DRUGS (3)
  1. OCELLA [Suspect]
     Indication: CONTRACEPTION
     Dosage: UNK
     Dates: start: 2006, end: 200701
  2. OCELLA [Suspect]
     Indication: MENSTRUAL DISORDER
  3. VICODIN [Concomitant]

REACTIONS (9)
  - Cholecystitis chronic [None]
  - Cholelithiasis [None]
  - Biliary colic [None]
  - Injury [None]
  - Pain [None]
  - Emotional distress [None]
  - Dyspnoea [None]
  - Anxiety [None]
  - Psychological trauma [None]
